FAERS Safety Report 25576765 (Version 1)
Quarter: 2025Q3

REPORT INFORMATION
  Report Type: Spontaneous
  Country: EU (occurrence: EU)
  Receive Date: 20250718
  Receipt Date: 20250718
  Transmission Date: 20251021
  Serious: Yes (Hospitalization)
  Sender: RANBAXY
  Company Number: EU-AFSSAPS-TS2025000349

PATIENT
  Age: 85 Year
  Sex: Male

DRUGS (3)
  1. LEVOFLOXACIN [Suspect]
     Active Substance: LEVOFLOXACIN
     Indication: Aortitis
     Dosage: 500 MILLIGRAM, DAILY
     Route: 048
     Dates: start: 20241118, end: 20250120
  2. ATORVASTATIN [Suspect]
     Active Substance: ATORVASTATIN
     Indication: Prophylaxis
     Dosage: 40 MILLIGRAM, DAILY
     Route: 048
     Dates: start: 20241026, end: 20250317
  3. FERROUS SULFATE [Suspect]
     Active Substance: FERROUS SULFATE
     Indication: Product used for unknown indication
     Dosage: 80 MILLIGRAM, DAILY
     Route: 048
     Dates: start: 20241128, end: 2025

REACTIONS (2)
  - Rash maculo-papular [Recovering/Resolving]
  - Eosinophilia [Recovering/Resolving]

NARRATIVE: CASE EVENT DATE: 20241201
